FAERS Safety Report 15491474 (Version 1)
Quarter: 2018Q4

REPORT INFORMATION
  Report Type: Spontaneous
  Country: CA (occurrence: CA)
  Receive Date: 20181012
  Receipt Date: 20181012
  Transmission Date: 20190205
  Serious: Yes (Other)
  Sender: FDA-Public Use
  Company Number: CA-LUPIN PHARMACEUTICALS INC.-2018-07131

PATIENT
  Age: 93 Year
  Sex: Female

DRUGS (1)
  1. CELECOXIB. [Suspect]
     Active Substance: CELECOXIB
     Indication: GOUT
     Dosage: UNK
     Route: 065

REACTIONS (2)
  - Acute kidney injury [Unknown]
  - Chest pain [Unknown]
